FAERS Safety Report 12058720 (Version 1)
Quarter: 2016Q1

REPORT INFORMATION
  Report Type: Spontaneous
  Country: US (occurrence: None)
  Receive Date: 20160209
  Receipt Date: 20160209
  Transmission Date: 20160526
  Serious: No
  Sender: FDA-Public Use
  Company Number: None

PATIENT
  Age: 68 Year
  Sex: Male

DRUGS (1)
  1. NOVOLIN [Suspect]
     Active Substance: INSULIN HUMAN

REACTIONS (2)
  - Nerve injury [None]
  - Inability to afford medication [None]
